FAERS Safety Report 4300929-9 (Version None)
Quarter: 2004Q1

REPORT INFORMATION
  Report Type: 
  Country: None (occurrence: None)
  Receive Date: 20040219
  Receipt Date: 20040216
  Transmission Date: 20041129
  Serious: Yes (Disabling)
  Sender: FDA-Public Use
  Company Number: 2003GB02615

PATIENT
  Age: 59 Year
  Sex: Male

DRUGS (2)
  1. CASODEX [Suspect]
     Indication: PROSTATE CANCER
     Dates: start: 20030911, end: 20030919
  2. IBUPROFEN [Concomitant]

REACTIONS (3)
  - CHILLS [None]
  - CIRCULATORY COLLAPSE [None]
  - INFLUENZA LIKE ILLNESS [None]
